FAERS Safety Report 13277896 (Version 1)
Quarter: 2017Q1

REPORT INFORMATION
  Report Type: Spontaneous
  Country: US (occurrence: US)
  Receive Date: 20170228
  Receipt Date: 20170228
  Transmission Date: 20170428
  Serious: No
  Sender: FDA-Public Use
  Company Number: US-MYLANLABS-2016M1040936

PATIENT
  Age: 16 Year
  Sex: Male
  Weight: 54.42 kg

DRUGS (1)
  1. GUANFACINE TABLETS, USP [Suspect]
     Active Substance: GUANFACINE
     Indication: ANXIETY
     Dosage: 1 MG, HS
     Route: 048
     Dates: start: 201608, end: 201608

REACTIONS (1)
  - Hallucination [Not Recovered/Not Resolved]

NARRATIVE: CASE EVENT DATE: 201608
